FAERS Safety Report 19410236 (Version 1)
Quarter: 2021Q2

REPORT INFORMATION
  Report Type: Spontaneous
  Country: US (occurrence: US)
  Receive Date: 20210614
  Receipt Date: 20210614
  Transmission Date: 20210717
  Serious: No
  Sender: FDA-Public Use
  Company Number: US-JNJFOC-20210600166

PATIENT
  Age: 12 Year
  Sex: Male
  Weight: 54 kg

DRUGS (3)
  1. CHILDRENS BENADRYL ALLERGY PLUS CONGESTION [Suspect]
     Active Substance: DIPHENHYDRAMINE HYDROCHLORIDE\PHENYLEPHRINE HYDROCHLORIDE
     Indication: LIP SWELLING
     Dosage: STOCK DOSE: 12.5MG/5MG PER 5 ML
     Route: 065
     Dates: start: 202105
  2. COVID?19 VACCINE [Concomitant]
     Indication: COVID-19 IMMUNISATION
     Dosage: FIRST DOSE, RIGHT ARM
     Route: 065
     Dates: start: 20210521
  3. CHILDRENS ZYRTEC [Suspect]
     Active Substance: CETIRIZINE HYDROCHLORIDE
     Indication: LIP SWELLING
     Route: 065
     Dates: start: 20210524

REACTIONS (3)
  - Off label use [Unknown]
  - Lip swelling [Not Recovered/Not Resolved]
  - Product use in unapproved indication [Unknown]

NARRATIVE: CASE EVENT DATE: 202105
